FAERS Safety Report 7545233-0 (Version None)
Quarter: 2011Q2

REPORT INFORMATION
  Report Type: 
  Country: None (occurrence: None)
  Receive Date: 20110524
  Receipt Date: 20110210
  Transmission Date: 20111010
  Serious: No
  Sender: FDA-Public Use
  Company Number: 027337

PATIENT
  Sex: Male
  Weight: 72.6 kg

DRUGS (3)
  1. LOMOTIL /00034001/ [Concomitant]
  2. CIMZIA [Suspect]
     Indication: CROHN'S DISEASE
     Dosage: (2 SHOTS SUBCUTANEOUS)
     Route: 058
     Dates: start: 20101001
  3. DILANTIN [Concomitant]

REACTIONS (1)
  - RECTAL DISCHARGE [None]
